FAERS Safety Report 12519502 (Version 3)
Quarter: 2016Q4

REPORT INFORMATION
  Report Type: Report from Study
  Country: US (occurrence: US)
  Receive Date: 20160701
  Receipt Date: 20161014
  Transmission Date: 20170207
  Serious: Yes (Other)
  Sender: FDA-Public Use
  Company Number: US-AMGEN-USASL2016082691

PATIENT
  Age: 61 Year
  Sex: Female

DRUGS (1)
  1. PROLIA [Suspect]
     Active Substance: DENOSUMAB
     Indication: OSTEOPOROSIS
     Dosage: UNK
     Route: 065
     Dates: start: 201506

REACTIONS (10)
  - Musculoskeletal disorder [Recovered/Resolved]
  - Rash [Unknown]
  - Abasia [Unknown]
  - Pain [Recovered/Resolved]
  - Spinal fracture [Recovered/Resolved]
  - Skeletal injury [Unknown]
  - Asthenia [Unknown]
  - Foot deformity [Recovered/Resolved]
  - Feeling abnormal [Recovered/Resolved]
  - Oesophageal disorder [Unknown]

NARRATIVE: CASE EVENT DATE: 2016
